FAERS Safety Report 7511599-0 (Version None)
Quarter: 2011Q2

REPORT INFORMATION
  Report Type: 
  Country: None (occurrence: None)
  Receive Date: 20110531
  Receipt Date: 20110524
  Transmission Date: 20111010
  Serious: Yes (Other)
  Sender: FDA-Public Use
  Company Number: US-PFIZER INC-2011096479

PATIENT
  Sex: Male
  Weight: 92.971 kg

DRUGS (10)
  1. PRILOSEC [Concomitant]
  2. LYRICA [Suspect]
     Indication: DIABETIC NEUROPATHY
     Dosage: 100 MG, 3X/DAY
     Route: 048
     Dates: start: 20060101
  3. FLOMAX [Concomitant]
  4. ASPIRIN [Concomitant]
     Dosage: UNK
  5. GLYBURIDE [Concomitant]
     Indication: DIABETES MELLITUS
     Dosage: UNK
  6. METFORMIN [Concomitant]
     Indication: DIABETES MELLITUS
     Dosage: UNK
  7. PRAVASTATIN [Concomitant]
     Dosage: UNK
  8. NEURONTIN [Suspect]
     Indication: DIABETIC NEUROPATHY
     Dosage: ^400MG Q2^
     Route: 048
     Dates: start: 20060101, end: 20060101
  9. TRAZODONE [Concomitant]
  10. KLONOPIN [Concomitant]

REACTIONS (3)
  - BENIGN PROSTATIC HYPERPLASIA [None]
  - BLOOD CHOLESTEROL INCREASED [None]
  - DYSURIA [None]
